FAERS Safety Report 9669456 (Version 1)
Quarter: 2013Q4

REPORT INFORMATION
  Report Type: Spontaneous
  Country: BR (occurrence: BR)
  Receive Date: 20131105
  Receipt Date: 20131105
  Transmission Date: 20140711
  Serious: Yes (Other)
  Sender: FDA-Public Use
  Company Number: BR-PFIZER INC-2013311455

PATIENT
  Age: 85 Year
  Sex: Female

DRUGS (2)
  1. XALATAN [Suspect]
     Indication: GLAUCOMA
     Dosage: 1 DROP IN EACH EYE (3 UG), UNSPECIFIED FREQUENCY
     Route: 047
     Dates: start: 2008, end: 2009
  2. XALATAN [Suspect]
     Indication: CATARACT

REACTIONS (2)
  - Glaucoma [Unknown]
  - Cataract [Unknown]
